APPROVED DRUG PRODUCT: NIACIN
Active Ingredient: NIACIN
Strength: 500MG
Dosage Form/Route: TABLET, EXTENDED RELEASE;ORAL
Application: A203742 | Product #001
Applicant: RISING PHARMA HOLDINGS INC
Approved: Feb 22, 2019 | RLD: No | RS: No | Type: DISCN